FAERS Safety Report 4668855-3 (Version None)
Quarter: 2005Q2

REPORT INFORMATION
  Report Type: 
  Country: None (occurrence: None)
  Receive Date: 20050523
  Receipt Date: 20050511
  Transmission Date: 20051028
  Serious: Yes (Hospitalization, Disabling, Other)
  Sender: FDA-Public Use
  Company Number: US-MERCK-0505USA01488

PATIENT
  Age: 64 Year
  Sex: Female

DRUGS (12)
  1. ZOCOR [Suspect]
     Indication: HYPERLIPIDAEMIA
     Route: 048
  2. BIAXIN [Suspect]
     Indication: SINUSITIS
     Route: 065
  3. POTASSIUM (UNSPECIFIED) [Concomitant]
     Route: 065
  4. NEURONTIN [Concomitant]
     Route: 065
  5. VASOTEC [Concomitant]
     Route: 048
  6. LOPRESSOR [Concomitant]
     Route: 065
  7. REGLAN [Concomitant]
     Route: 065
  8. SYNTHROID [Concomitant]
     Route: 065
  9. COUMADIN [Concomitant]
     Route: 065
  10. CELEXA [Concomitant]
     Route: 065
  11. KLONOPIN [Concomitant]
     Route: 065
  12. CAPEX SHAMPOO [Concomitant]
     Route: 065

REACTIONS (5)
  - COAGULOPATHY [None]
  - DRUG INTERACTION [None]
  - RENAL FAILURE ACUTE [None]
  - RHABDOMYOLYSIS [None]
  - SINUSITIS [None]
